FAERS Safety Report 7215895-6 (Version None)
Quarter: 2011Q1

REPORT INFORMATION
  Report Type: 
  Country: None (occurrence: None)
  Receive Date: 20110105
  Receipt Date: 20110105
  Transmission Date: 20110831
  Serious: Yes (Other)
  Sender: FDA-Public Use
  Company Number: None

PATIENT
  Age: 58 Year
  Sex: Male
  Weight: 77.1115 kg

DRUGS (1)
  1. CRESTOR [Suspect]
     Indication: CHOLESTEROSIS
     Dosage: 10MG DAILY PO
     Route: 048
     Dates: start: 20090801, end: 20100802

REACTIONS (1)
  - OSTEOARTHRITIS [None]
